FAERS Safety Report 22258562 (Version 10)
Quarter: 2024Q2

REPORT INFORMATION
  Report Type: Report from Study
  Country: US (occurrence: US)
  Receive Date: 20230427
  Receipt Date: 20240619
  Transmission Date: 20240715
  Serious: Yes (Hospitalization)
  Sender: FDA-Public Use
  Company Number: US-BoehringerIngelheim-2023-BI-214023

PATIENT
  Age: 72 Year
  Sex: Female

DRUGS (4)
  1. OFEV [Suspect]
     Active Substance: NINTEDANIB
     Indication: Idiopathic pulmonary fibrosis
     Dosage: LOT# 106683,106516, 204096
     Route: 048
     Dates: start: 20230112
  2. OFEV [Suspect]
     Active Substance: NINTEDANIB
     Route: 048
  3. OFEV [Suspect]
     Active Substance: NINTEDANIB
     Route: 048
  4. ELIQUIS [Concomitant]
     Active Substance: APIXABAN
     Indication: Product used for unknown indication

REACTIONS (18)
  - Diarrhoea [Recovered/Resolved]
  - Vomiting [Recovered/Resolved]
  - Urinary tract infection [Unknown]
  - Gastric infection [Unknown]
  - COVID-19 [Unknown]
  - Atrial fibrillation [Unknown]
  - Dizziness [Unknown]
  - Gastrointestinal haemorrhage [Unknown]
  - Asthenia [Unknown]
  - Illness [Not Recovered/Not Resolved]
  - Vomiting [Recovered/Resolved]
  - Nausea [Unknown]
  - Abdominal pain upper [Unknown]
  - Tremor [Unknown]
  - Dysstasia [Unknown]
  - Weight decreased [Not Recovered/Not Resolved]
  - Diarrhoea [Unknown]
  - Vomiting [Unknown]

NARRATIVE: CASE EVENT DATE: 20230101
